FAERS Safety Report 9962141 (Version 1)
Quarter: 2014Q1

REPORT INFORMATION
  Report Type: Report from Study
  Country: US (occurrence: US)
  Receive Date: 20140305
  Receipt Date: 20140305
  Transmission Date: 20141002
  Serious: No
  Sender: FDA-Public Use
  Company Number: US-ABBVIE-13P-163-1113835-00

PATIENT
  Sex: Female

DRUGS (5)
  1. HUMIRA [Suspect]
  2. KEPPRA [Concomitant]
     Indication: CONVULSION
  3. LEXAPRO [Concomitant]
     Indication: POSTPARTUM DEPRESSION
     Dosage: 20 MG EVERYDAY
  4. NUVARING [Concomitant]
     Indication: PAIN
     Dosage: 20MCG PER HOUR EVERY WEEK
  5. BUTRANS [Concomitant]
     Indication: PAIN
     Dosage: 20 MCG PER HOUR EVERY WEEK

REACTIONS (2)
  - Contusion [Not Recovered/Not Resolved]
  - Injection site bruising [Not Recovered/Not Resolved]
